FAERS Safety Report 4524524-1 (Version None)
Quarter: 2005Q1

REPORT INFORMATION
  Report Type: 
  Country: None (occurrence: None)
  Receive Date: 20041117
  Receipt Date: 20040112
  Transmission Date: 20050727
  Serious: Yes (Other)
  Sender: FDA-Public Use
  Company Number: US-JNJFOC-20040102268

PATIENT
  Age: 49 Year
  Sex: Female
  Weight: 108.8633 kg

DRUGS (5)
  1. LEVAQUIN [Suspect]
     Indication: RESPIRATORY TRACT INFECTION
     Dosage: 500 MG, 1 IN 1 DAY, ORAL
     Route: 047
     Dates: start: 20031006, end: 20031015
  2. TENORMIN [Concomitant]
  3. ATIVAN [Concomitant]
  4. NARCO (ANALGESICS) [Concomitant]
  5. QUESTRAN [Concomitant]

REACTIONS (1)
  - PANCYTOPENIA [None]
